FAERS Safety Report 21951381 (Version 2)
Quarter: 2023Q2

REPORT INFORMATION
  Report Type: Spontaneous
  Country: US (occurrence: US)
  Receive Date: 20230203
  Receipt Date: 20230627
  Transmission Date: 20230721
  Serious: No
  Sender: FDA-Public Use
  Company Number: US-SA-SAC20230201001554

PATIENT
  Age: 30 Year
  Sex: Female

DRUGS (1)
  1. DUPIXENT [Suspect]
     Active Substance: DUPILUMAB
     Indication: Eosinophilic oesophagitis
     Dosage: 300 MG, OTHER
     Route: 058
     Dates: end: 2023

REACTIONS (6)
  - Injection site rash [Unknown]
  - Injection site pain [Unknown]
  - Inflammation [Unknown]
  - Pruritus [Unknown]
  - Rash [Unknown]
  - Product preparation error [Unknown]

NARRATIVE: CASE EVENT DATE: 20230110
